FAERS Safety Report 21573696 (Version 2)
Quarter: 2022Q4

REPORT INFORMATION
  Report Type: Report from Study
  Country: US (occurrence: US)
  Receive Date: 20221109
  Receipt Date: 20221114
  Transmission Date: 20230113
  Serious: Yes (Hospitalization, Disabling, Other)
  Sender: FDA-Public Use
  Company Number: US-ABBVIE-4192804

PATIENT
  Sex: Female
  Weight: 71 kg

DRUGS (2)
  1. HUMIRA [Suspect]
     Active Substance: ADALIMUMAB
     Indication: Rheumatoid arthritis
     Dosage: CITRATE FREE ?FORM STRENGTH: 40 MILLIGRAM
     Route: 058
     Dates: start: 1997
  2. METHOTREXATE [Concomitant]
     Active Substance: METHOTREXATE
     Indication: Rheumatoid arthritis

REACTIONS (7)
  - Disability [Unknown]
  - Gait disturbance [Not Recovered/Not Resolved]
  - Hypoacusis [Not Recovered/Not Resolved]
  - Cataract [Recovered/Resolved]
  - Dyspnoea [Recovered/Resolved]
  - Blood cholesterol abnormal [Unknown]
  - Blood pressure abnormal [Unknown]

NARRATIVE: CASE EVENT DATE: 20070101
